FAERS Safety Report 7798419-4 (Version None)
Quarter: 2011Q4

REPORT INFORMATION
  Report Type: 
  Country: None (occurrence: None)
  Receive Date: 20111005
  Receipt Date: 20110208
  Transmission Date: 20120403
  Serious: No
  Sender: FDA-Public Use
  Company Number: US-BAYER-2011-013293

PATIENT
  Age: 60 Year
  Sex: Male

DRUGS (3)
  1. LEVITRA [Suspect]
  2. LEVITRA [Suspect]
     Indication: ERECTILE DYSFUNCTION
     Dosage: 20 MG, PRN
     Route: 048
  3. ASPIRIN [Concomitant]

REACTIONS (1)
  - EPISTAXIS [None]
